FAERS Safety Report 18901907 (Version 2)
Quarter: 2021Q1

REPORT INFORMATION
  Report Type: Spontaneous
  Country: US (occurrence: US)
  Receive Date: 20210217
  Receipt Date: 20210301
  Transmission Date: 20210420
  Serious: Yes (Hospitalization, Other)
  Sender: FDA-Public Use
  Company Number: US-BIOVITRUM-2021US1478

PATIENT
  Age: 10 Month
  Sex: Male

DRUGS (12)
  1. ALBUTEROL. [Concomitant]
     Active Substance: ALBUTEROL
  2. NACL [Concomitant]
     Active Substance: SODIUM CHLORIDE
  3. OXYBUTYNIN. [Concomitant]
     Active Substance: OXYBUTYNIN CHLORIDE
  4. ESOMEPRAZOLE. [Concomitant]
     Active Substance: ESOMEPRAZOLE MAGNESIUM
  5. ONDANSETRON ? ZOFRAN [Concomitant]
  6. GLYCOPYRROLATE. [Concomitant]
     Active Substance: GLYCOPYRROLATE
  7. TYLENOL [Concomitant]
     Active Substance: ACETAMINOPHEN
  8. LACTULOSE. [Concomitant]
     Active Substance: LACTULOSE
  9. SYNAGIS [Suspect]
     Active Substance: PALIVIZUMAB
     Indication: VACTERL SYNDROME
     Dates: start: 20201127, end: 20201127
  10. BUDESONIDE. [Concomitant]
     Active Substance: BUDESONIDE
  11. IBUPROFEN. [Concomitant]
     Active Substance: IBUPROFEN
  12. SYNAGIS [Suspect]
     Active Substance: PALIVIZUMAB
     Route: 030
     Dates: start: 20201226, end: 20201226

REACTIONS (3)
  - Product dose omission issue [Unknown]
  - Respiratory failure [Recovered/Resolved]
  - Off label use [Unknown]

NARRATIVE: CASE EVENT DATE: 20201127
